FAERS Safety Report 6507342-4 (Version None)
Quarter: 2009Q4

REPORT INFORMATION
  Report Type: 
  Country: None (occurrence: None)
  Receive Date: 20091221
  Receipt Date: 20091216
  Transmission Date: 20100525
  Serious: Yes (Death)
  Sender: FDA-Public Use
  Company Number: US-NOVOPROD-302180

PATIENT

DRUGS (1)
  1. LEVEMIR [Suspect]
     Indication: DIABETES MELLITUS
     Dosage: UNKNOWN

REACTIONS (2)
  - BLOOD GLUCOSE FLUCTUATION [None]
  - DEATH [None]
